FAERS Safety Report 6358832-9 (Version None)
Quarter: 2009Q3

REPORT INFORMATION
  Report Type: 
  Country: None (occurrence: None)
  Receive Date: 20090916
  Receipt Date: 20090910
  Transmission Date: 20100115
  Serious: No
  Sender: FDA-Public Use
  Company Number: US-ABBOTT-09P-163-0596234-00

PATIENT
  Sex: Male

DRUGS (12)
  1. TRILIPIX [Suspect]
     Indication: HYPERLIPIDAEMIA
  2. PLAVIX [Concomitant]
     Indication: DRUG USE FOR UNKNOWN INDICATION
  3. PROCRIT [Concomitant]
     Indication: DRUG USE FOR UNKNOWN INDICATION
  4. IMDUR [Concomitant]
     Indication: DRUG USE FOR UNKNOWN INDICATION
  5. PRILOSEC [Concomitant]
     Indication: DRUG USE FOR UNKNOWN INDICATION
  6. HYDRALAZINE HCL [Concomitant]
     Indication: DRUG USE FOR UNKNOWN INDICATION
  7. DOXASOCIN [Concomitant]
     Indication: DRUG USE FOR UNKNOWN INDICATION
  8. XANAX [Concomitant]
     Indication: DRUG USE FOR UNKNOWN INDICATION
  9. ASPIRIN [Concomitant]
     Indication: DRUG USE FOR UNKNOWN INDICATION
  10. METOPROLOL TARTRATE [Concomitant]
     Indication: DRUG USE FOR UNKNOWN INDICATION
  11. LASIX [Concomitant]
     Indication: DRUG USE FOR UNKNOWN INDICATION
  12. ALLOPURINOL [Concomitant]
     Indication: DRUG USE FOR UNKNOWN INDICATION

REACTIONS (3)
  - IDIOSYNCRATIC DRUG REACTION [None]
  - PRURITUS [None]
  - RASH PAPULAR [None]
